FAERS Safety Report 6639697-4 (Version None)
Quarter: 2010Q1

REPORT INFORMATION
  Report Type: 
  Country: None (occurrence: None)
  Receive Date: 20100301
  Receipt Date: 20090815
  Transmission Date: 20100710
  Serious: Yes (Hospitalization, Other)
  Sender: FDA-Public Use
  Company Number: RB-19415-2009

PATIENT
  Sex: Male

DRUGS (1)
  1. SUBOXONE [Suspect]
     Indication: DRUG USE FOR UNKNOWN INDICATION

REACTIONS (10)
  - BACK INJURY [None]
  - BRAIN CONTUSION [None]
  - CERVICAL VERTEBRAL FRACTURE [None]
  - FOOT AMPUTATION [None]
  - FRACTURE [None]
  - HAEMORRHAGE [None]
  - LOWER LIMB FRACTURE [None]
  - RIB FRACTURE [None]
  - ROAD TRAFFIC ACCIDENT [None]
  - TRAUMATIC LUNG INJURY [None]
